FAERS Safety Report 4831233-8 (Version None)
Quarter: 2005Q4

REPORT INFORMATION
  Report Type: 
  Country: None (occurrence: None)
  Receive Date: 20051118
  Receipt Date: 20051109
  Transmission Date: 20060501
  Serious: Yes (Death)
  Sender: FDA-Public Use
  Company Number: IT-JNJFOC-20051102500

PATIENT
  Sex: Male

DRUGS (6)
  1. REMINYL [Suspect]
     Route: 048
  2. KETOROLAC TROMETHAMINE [Suspect]
     Indication: POST-TRAUMATIC PAIN
     Route: 030
  3. NIMESULIDE [Suspect]
     Indication: POST-TRAUMATIC PAIN
     Route: 048
  4. RISPERDAL [Concomitant]
  5. STILNOX [Concomitant]
  6. PILOTONINA [Concomitant]
     Dosage: 2 DROPS
     Route: 047

REACTIONS (1)
  - DUODENAL ULCER HAEMORRHAGE [None]
